FAERS Safety Report 25353990 (Version 1)
Quarter: 2025Q2

REPORT INFORMATION
  Report Type: Spontaneous
  Country: US (occurrence: US)
  Receive Date: 20250523
  Receipt Date: 20250523
  Transmission Date: 20250716
  Serious: No
  Sender: SANOFI AVENTIS
  Company Number: US-SA-2025SA147048

PATIENT
  Sex: Female
  Weight: 10.91 kg

DRUGS (9)
  1. DUPIXENT [Suspect]
     Active Substance: DUPILUMAB
     Indication: Dermatitis atopic
     Dosage: 200 MG, Q4W
     Route: 058
  2. TACROLIMUS [Concomitant]
     Active Substance: TACROLIMUS
  3. CEPHALEXIN [Concomitant]
     Active Substance: CEPHALEXIN
  4. PREDNISOLONE [Concomitant]
     Active Substance: PREDNISOLONE
  5. MOMETASONE FUROATE [Concomitant]
     Active Substance: MOMETASONE FUROATE
  6. HYDROCORTISONE [Concomitant]
     Active Substance: HYDROCORTISONE
  7. EPINEPHRINE [Concomitant]
     Active Substance: EPINEPHRINE
  8. TRIAMCINOLONE ACETONIDE [Concomitant]
     Active Substance: TRIAMCINOLONE ACETONIDE
  9. MUPIROCIN [Concomitant]
     Active Substance: MUPIROCIN

REACTIONS (1)
  - Dermatitis atopic [Unknown]
